FAERS Safety Report 16097834 (Version 1)
Quarter: 2019Q1

REPORT INFORMATION
  Report Type: Report from Study
  Country: US (occurrence: US)
  Receive Date: 20190320
  Receipt Date: 20190320
  Transmission Date: 20190418
  Serious: Yes (Other)
  Sender: FDA-Public Use
  Company Number: US-EXELIXIS-CABO-19019177

PATIENT
  Age: 80 Year
  Sex: Male

DRUGS (2)
  1. CABOMETYX [Suspect]
     Active Substance: CABOZANTINIB S-MALATE
     Indication: LUNG NEOPLASM MALIGNANT
     Dosage: 20 MG, QD (AM, W/O FOOD)
     Dates: start: 20190220, end: 20190305
  2. CABOMETYX [Suspect]
     Active Substance: CABOZANTINIB S-MALATE
     Indication: BRONCHIAL NEOPLASM

REACTIONS (7)
  - Skin disorder [Unknown]
  - Fall [Unknown]
  - Off label use [Unknown]
  - Fatigue [Unknown]
  - Wound dehiscence [Unknown]
  - Fractured sacrum [Unknown]
  - Chromaturia [Unknown]

NARRATIVE: CASE EVENT DATE: 201903
